FAERS Safety Report 22075800 (Version 4)
Quarter: 2024Q1

REPORT INFORMATION
  Report Type: Spontaneous
  Country: US (occurrence: US)
  Receive Date: 20230308
  Receipt Date: 20240125
  Transmission Date: 20240409
  Serious: Yes (Hospitalization, Other)
  Sender: FDA-Public Use
  Company Number: US-PFIZER INC-PV202300044932

PATIENT
  Age: 65 Year
  Sex: Male
  Weight: 92.971 kg

DRUGS (1)
  1. XELJANZ XR [Suspect]
     Active Substance: TOFACITINIB CITRATE
     Indication: Rheumatoid arthritis
     Dosage: 11 MG, DAILY
     Route: 048

REACTIONS (5)
  - Pericardial effusion [Recovered/Resolved with Sequelae]
  - Pericardial excision [Recovering/Resolving]
  - Near death experience [Unknown]
  - Acne [Unknown]
  - Inflammation [Unknown]

NARRATIVE: CASE EVENT DATE: 20220109
